FAERS Safety Report 7485047-3 (Version None)
Quarter: 2011Q2

REPORT INFORMATION
  Report Type: 
  Country: None (occurrence: None)
  Receive Date: 20110517
  Receipt Date: 20110506
  Transmission Date: 20111010
  Serious: Yes (Death)
  Sender: FDA-Public Use
  Company Number: FR-ROCHE-775963

PATIENT
  Age: 64 Year
  Sex: Male
  Weight: 67 kg

DRUGS (5)
  1. VALACYCLOVIR HYDROCHLORIDE [Suspect]
     Indication: HERPES ZOSTER
     Route: 065
  2. NEORECORMON [Concomitant]
  3. ATOVAQUONE [Suspect]
     Indication: ANTIFUNGAL PROPHYLAXIS
     Route: 065
  4. ACTEMRA [Suspect]
     Indication: CASTLEMAN'S DISEASE
     Route: 042
     Dates: start: 20110421, end: 20110421
  5. PREDNISONE [Suspect]
     Route: 048

REACTIONS (2)
  - MULTI-ORGAN FAILURE [None]
  - ACUTE HEPATIC FAILURE [None]
